FAERS Safety Report 26045539 (Version 1)
Quarter: 2025Q4

REPORT INFORMATION
  Report Type: Spontaneous
  Country: US (occurrence: None)
  Receive Date: 20251114
  Receipt Date: 20251114
  Transmission Date: 20260118
  Serious: No
  Sender: ENCUBE ETHICALS PVT. LTD.
  Company Number: US-Encube-002600

PATIENT
  Sex: Female

DRUGS (2)
  1. MUPIROCIN [Suspect]
     Active Substance: MUPIROCIN
     Indication: Rhinitis
  2. MUPIROCIN [Suspect]
     Active Substance: MUPIROCIN
     Indication: Acne

REACTIONS (3)
  - Pruritus [Unknown]
  - Erythema [Unknown]
  - Off label use [Unknown]
